FAERS Safety Report 9333349 (Version 2)
Quarter: 2013Q3

REPORT INFORMATION
  Report Type: Spontaneous
  Country: IT (occurrence: IT)
  Receive Date: 20130606
  Receipt Date: 20130731
  Transmission Date: 20140515
  Serious: Yes (Hospitalization)
  Sender: FDA-Public Use
  Company Number: IT-PFIZER INC-2013169199

PATIENT
  Age: 79 Year
  Sex: Female

DRUGS (5)
  1. CARDURA [Suspect]
     Indication: HYPERTENSION
     Dosage: 2 MG, 1X/DAY
     Route: 048
     Dates: start: 20100101, end: 20130521
  2. CARDURA [Suspect]
     Dosage: 4 MG, UNK
     Route: 048
     Dates: start: 20130522, end: 20130522
  3. ASCRIPTIN [Concomitant]
     Dosage: 0.5 DF, UNK
     Route: 048
  4. FELISON [Concomitant]
     Dosage: UNK
  5. VASEXTEN [Concomitant]
     Dosage: UNK

REACTIONS (3)
  - Hypotension [Recovering/Resolving]
  - Encephalopathy [Unknown]
  - Wound [Unknown]
